FAERS Safety Report 6755226-9 (Version None)
Quarter: 2010Q2

REPORT INFORMATION
  Report Type: 
  Country: None (occurrence: None)
  Receive Date: 20100604
  Receipt Date: 20100526
  Transmission Date: 20101027
  Serious: No
  Sender: FDA-Public Use
  Company Number: US-BIOGENIDEC-2010BI017926

PATIENT
  Sex: Female

DRUGS (1)
  1. TYSABRI [Suspect]
     Indication: MULTIPLE SCLEROSIS
     Route: 042
     Dates: start: 20080609, end: 20081006

REACTIONS (5)
  - CONSTIPATION [None]
  - FATIGUE [None]
  - HYPOGLYCAEMIA [None]
  - PARAESTHESIA [None]
  - RESTLESS LEGS SYNDROME [None]
